FAERS Safety Report 9248571 (Version 2)
Quarter: 2013Q2

REPORT INFORMATION
  Report Type: Spontaneous
  Country: FR (occurrence: FR)
  Receive Date: 20130423
  Receipt Date: 20130620
  Transmission Date: 20140414
  Serious: Yes (Hospitalization, Other)
  Sender: FDA-Public Use
  Company Number: FR-ELI_LILLY_AND_COMPANY-FR201304003614

PATIENT
  Age: 40 Year
  Sex: Female

DRUGS (3)
  1. CYMBALTA [Suspect]
     Indication: OBSESSIVE-COMPULSIVE DISORDER
     Dosage: UNK, UNKNOWN
     Route: 048
  2. ADEPAL [Concomitant]
     Indication: CONTRACEPTION
     Dosage: UNK, UNKNOWN
     Dates: start: 2009, end: 20120907
  3. TRINORDIOL [Concomitant]
     Dosage: UNK
     Route: 048
     Dates: start: 2007, end: 2009

REACTIONS (3)
  - Ischaemic stroke [Recovered/Resolved]
  - Chlamydial infection [Unknown]
  - Off label use [Unknown]
